FAERS Safety Report 9513656 (Version 2)
Quarter: 2013Q3

REPORT INFORMATION
  Report Type: Spontaneous
  Country: AU (occurrence: AU)
  Receive Date: 20130910
  Receipt Date: 20130924
  Transmission Date: 20140515
  Serious: Yes (Hospitalization, Disabling)
  Sender: FDA-Public Use
  Company Number: AU-B.I. PHARMACEUTICALS,INC./RIDGEFIELD-2013-BI-27605AU

PATIENT
  Age: 89 Year
  Sex: Male
  Weight: 73 kg

DRUGS (4)
  1. PRADAXA [Suspect]
     Indication: ATRIAL FIBRILLATION
     Dosage: 220 MG
     Dates: start: 20130606, end: 20130904
  2. FLOMAXTRA [Concomitant]
     Dates: start: 2012
  3. KARVEZIDE [Concomitant]
     Dosage: DOSE OF ONE APPLICATION- 300/12.5 MILLIGRAM
     Dates: start: 2001
  4. PANADOL OSTEO [Concomitant]
     Dates: start: 1996

REACTIONS (2)
  - Retinal haemorrhage [Not Recovered/Not Resolved]
  - Blindness [Not Recovered/Not Resolved]
